FAERS Safety Report 5149751-4 (Version None)
Quarter: 2006Q4

REPORT INFORMATION
  Report Type: 
  Country: None (occurrence: None)
  Receive Date: 20061113
  Receipt Date: 20061103
  Transmission Date: 20070319
  Serious: Yes (Hospitalization)
  Sender: FDA-Public Use
  Company Number: GBWYE414703NOV06

PATIENT
  Sex: Female
  Weight: 66 kg

DRUGS (6)
  1. ENBREL [Suspect]
     Indication: RHEUMATOID ARTHRITIS
     Route: 058
     Dates: start: 20031006
  2. ROFECOXIB [Concomitant]
     Dosage: UNKNOWN
  3. ACETAMINOPHEN W/ CODEINE [Concomitant]
     Dosage: UNKNOWN
  4. LANSOPRAZOLE [Concomitant]
     Dosage: UNKNOWN
  5. LEFLUNOMIDE [Concomitant]
     Dosage: UNKNOWN
  6. AMITRIPTYLINE HCL [Concomitant]
     Dosage: UNKNOWN

REACTIONS (1)
  - CORONARY ARTERY DISEASE [None]
